FAERS Safety Report 4281828-8 (Version None)
Quarter: 2004Q1

REPORT INFORMATION
  Report Type: 
  Country: None (occurrence: None)
  Receive Date: 20040128
  Receipt Date: 20040114
  Transmission Date: 20041129
  Serious: Yes (Other)
  Sender: FDA-Public Use
  Company Number: A-CH2004-04285

PATIENT
  Age: 76 Year
  Sex: Female

DRUGS (9)
  1. TRACLEER [Suspect]
     Indication: PULMONARY HYPERTENSION
     Dosage: 62.5 MG, BID, ORAL
     Route: 048
     Dates: start: 20031219, end: 20031226
  2. PREDNISONE [Concomitant]
  3. ZYRTEC [Concomitant]
  4. POTASSIUM CHLORIDE [Concomitant]
  5. FORADIL [Concomitant]
  6. ECAZIDE (HYDROCHLOROTHIAZIDE, CAPTOPRIL) [Concomitant]
  7. ZOCOR [Concomitant]
  8. PREVISCAN (FLUINDIONE) [Concomitant]
  9. FLIXOTIDE ^GLAXO^ (FLUTICASONE PROPIONATE) [Concomitant]

REACTIONS (3)
  - ALANINE AMINOTRANSFERASE INCREASED [None]
  - ASPARTATE AMINOTRANSFERASE INCREASED [None]
  - GAMMA-GLUTAMYLTRANSFERASE INCREASED [None]
